FAERS Safety Report 20685009 (Version 2)
Quarter: 2022Q2

REPORT INFORMATION
  Report Type: Spontaneous
  Country: US (occurrence: US)
  Receive Date: 20220407
  Receipt Date: 20220607
  Transmission Date: 20220721
  Serious: Yes (Other)
  Sender: FDA-Public Use
  Company Number: US-PFIZER INC-202101152825

PATIENT
  Age: 61 Year
  Sex: Male

DRUGS (13)
  1. INLYTA [Suspect]
     Active Substance: AXITINIB
     Indication: Renal cell carcinoma
     Dosage: 2 MG, 2X/DAY (EVERY 12 HOURS)
     Route: 048
     Dates: start: 202105, end: 2021
  2. INLYTA [Suspect]
     Active Substance: AXITINIB
     Dosage: 7 MG, 2X/DAY (EVERY 12 HOURS)
     Dates: start: 2021, end: 20220307
  3. INLYTA [Suspect]
     Active Substance: AXITINIB
     Dosage: 7 MG, 2X/DAY (EVERY 12 HOURS)
     Dates: start: 20220321, end: 20220511
  4. COREG [Concomitant]
     Active Substance: CARVEDILOL
     Dosage: 12.5 MG
  5. .ALPHA.-ACETYLDIGOXIN [Concomitant]
     Active Substance: .ALPHA.-ACETYLDIGOXIN
     Dosage: 125 UG
  6. D3 50 [Concomitant]
     Dosage: 1250 UG
  7. ENTRESTO [Concomitant]
     Active Substance: SACUBITRIL\VALSARTAN
     Dosage: UNK [ENTRESTO 24MG-26MG]
  8. KEYTRUDA [Concomitant]
     Active Substance: PEMBROLIZUMAB
     Dosage: UNK [KEYTRUDA 100 MG/4ML VIAL]
  9. LASIX [Concomitant]
     Active Substance: FUROSEMIDE
     Dosage: 40 MG
  10. OMEPRAZOLE [Concomitant]
     Active Substance: OMEPRAZOLE
     Dosage: 40 MG
  11. SPIRONOLACTONE [Concomitant]
     Active Substance: SPIRONOLACTONE
     Dosage: 25 MG
  12. XARELTO [Concomitant]
     Active Substance: RIVAROXABAN
     Dosage: 10 MG
  13. ZOMETA [Concomitant]
     Active Substance: ZOLEDRONIC ACID
     Dosage: UNK [ZOMETA 4MG/100ML]

REACTIONS (5)
  - Hernia [Not Recovered/Not Resolved]
  - Nausea [Not Recovered/Not Resolved]
  - Fatigue [Not Recovered/Not Resolved]
  - Decreased appetite [Not Recovered/Not Resolved]
  - Wound [Not Recovered/Not Resolved]
